FAERS Safety Report 4779293-7 (Version None)
Quarter: 2005Q3

REPORT INFORMATION
  Report Type: 
  Country: None (occurrence: None)
  Receive Date: 20050914
  Receipt Date: 20050714
  Transmission Date: 20060218
  Serious: Yes (Other)
  Sender: FDA-Public Use
  Company Number: 411022

PATIENT
  Age: 71 Year
  Sex: Female
  Weight: 52.2 kg

DRUGS (3)
  1. BONIVA [Suspect]
     Indication: OSTEOPOROSIS
     Dosage: 150 MG 1 PER MONTH ORAL
     Route: 048
     Dates: start: 20050707
  2. CALTRATE 600 + D (CALCIUM/CHOLECALCIFEROL) [Suspect]
     Indication: OSTEOPOROSIS
     Dosage: ORAL
     Route: 048
  3. OSCAL (CALCIUM CARBONATE) [Concomitant]

REACTIONS (3)
  - ABDOMINAL PAIN UPPER [None]
  - DRY EYE [None]
  - DRY MOUTH [None]
